FAERS Safety Report 8363672-5 (Version None)
Quarter: 2012Q2

REPORT INFORMATION
  Report Type: 
  Country: None (occurrence: None)
  Receive Date: 20120516
  Receipt Date: 20120510
  Transmission Date: 20120825
  Serious: Yes (Other)
  Sender: FDA-Public Use
  Company Number: US-PFIZER INC-2012055224

PATIENT
  Sex: Female

DRUGS (6)
  1. ALBUTEROL [Concomitant]
     Indication: ASTHMA
     Dosage: UNK
     Dates: start: 20000101
  2. LISINOPRIL AND HYDROCHLOROTHIAZIDE [Concomitant]
     Indication: HYPERTENSION
     Dosage: UNK
     Dates: start: 20050101
  3. CHANTIX [Suspect]
     Indication: SMOKING CESSATION THERAPY
     Dosage: UNK
     Dates: start: 20090401, end: 20090501
  4. LYRICA [Concomitant]
     Indication: NEUROPATHY PERIPHERAL
     Dosage: UNK
     Dates: start: 20080101
  5. GLUCOTROL [Concomitant]
     Indication: DIABETES MELLITUS
     Dosage: UNK
     Dates: start: 20070101
  6. IBUPROFEN 600 [Concomitant]
     Indication: ENDOMETRIOSIS
     Dosage: UNK
     Dates: start: 20040101

REACTIONS (5)
  - DEPRESSION [None]
  - ANXIETY [None]
  - ANGER [None]
  - AGGRESSION [None]
  - SUICIDAL IDEATION [None]
